FAERS Safety Report 4315232-0 (Version None)
Quarter: 2004Q1

REPORT INFORMATION
  Report Type: 
  Country: None (occurrence: None)
  Receive Date: 20040311
  Receipt Date: 20040303
  Transmission Date: 20041129
  Serious: Yes (Other)
  Sender: FDA-Public Use
  Company Number: PHEH2004US02661

PATIENT
  Age: 62 Year
  Sex: Female

DRUGS (6)
  1. AREDIA [Suspect]
     Indication: BREAST CANCER METASTATIC
     Dosage: 90 MG, QMO
     Dates: start: 20000301, end: 20031223
  2. ZESTORETIC [Concomitant]
     Indication: HYPERTENSION
  3. FLUOROURACIL [Concomitant]
     Dosage: 1120MG Q3WK X 6
     Dates: start: 20000301, end: 20000701
  4. ADRIAMYCIN PFS [Concomitant]
     Dosage: 75 MG Q3WKS X 6
     Dates: start: 20000301, end: 20000701
  5. CYTOXAN [Concomitant]
     Dosage: 1120MG Q3WKS X 6
     Dates: start: 20000301, end: 20000701
  6. DEXAMETHASONE [Concomitant]
     Dosage: 20MG Q3WKS X6
     Dates: start: 20000301, end: 20000701

REACTIONS (8)
  - INFECTION [None]
  - INFLAMMATION [None]
  - OSTEONECROSIS [None]
  - PHARMACEUTICAL PRODUCT COMPLAINT [None]
  - PRIMARY SEQUESTRUM [None]
  - TOOTH EXTRACTION [None]
  - TOOTHACHE [None]
  - TREATMENT NONCOMPLIANCE [None]
